FAERS Safety Report 10681877 (Version 1)
Quarter: 2014Q4

REPORT INFORMATION
  Report Type: Spontaneous
  Country: US (occurrence: None)
  Receive Date: 20141229
  Receipt Date: 20141229
  Transmission Date: 20150529
  Serious: No
  Sender: FDA-Public Use
  Company Number: None

PATIENT
  Age: 8 Year
  Sex: Male
  Weight: 25.86 kg

DRUGS (1)
  1. METHYLPHENIDATE ER 27MG MALLINCKR [Suspect]
     Active Substance: METHYLPHENIDATE
     Indication: ATTENTION DEFICIT/HYPERACTIVITY DISORDER
     Dosage: 1 PILL ONCE DAILY TAKEN BY MOUTH
     Route: 048
     Dates: start: 20141202, end: 20141220

REACTIONS (3)
  - Product substitution issue [None]
  - Product quality issue [None]
  - Impulse-control disorder [None]

NARRATIVE: CASE EVENT DATE: 20141220
